FAERS Safety Report 17198152 (Version 1)
Quarter: 2019Q4

REPORT INFORMATION
  Report Type: Spontaneous
  Country: DE (occurrence: DE)
  Receive Date: 20191225
  Receipt Date: 20191225
  Transmission Date: 20200122
  Serious: Yes (Hospitalization, Other)
  Sender: FDA-Public Use
  Company Number: DE-AUROBINDO-AUR-APL-2018-024717

PATIENT
  Sex: Female
  Weight: 68 kg

DRUGS (2)
  1. LETROZOLE. [Suspect]
     Active Substance: LETROZOLE
     Indication: BREAST CANCER METASTATIC
     Dosage: 2.5 MILLIGRAM, ONCE A DAY,(1-0-0)
     Route: 048
     Dates: start: 20180302
  2. KISQALI [Suspect]
     Active Substance: RIBOCICLIB
     Indication: BREAST CANCER METASTATIC
     Dosage: 200 MILLIGRAM, 3 TIMES A DAY
     Route: 048
     Dates: start: 20180302

REACTIONS (10)
  - Concomitant disease aggravated [Recovered/Resolved]
  - Hypokalaemia [Recovered/Resolved]
  - Fatigue [Recovered/Resolved]
  - Pleural effusion [Recovered/Resolved]
  - Diarrhoea [Not Recovered/Not Resolved]
  - Vision blurred [Not Recovered/Not Resolved]
  - Blood pressure increased [Recovered/Resolved]
  - Cutis laxa [Recovered/Resolved]
  - Actinic elastosis [Recovered/Resolved]
  - Basal cell carcinoma [Recovered/Resolved]

NARRATIVE: CASE EVENT DATE: 20180319
